FAERS Safety Report 9512487 (Version 2)
Quarter: 2013Q3

REPORT INFORMATION
  Report Type: Report from Study
  Country: JP (occurrence: JP)
  Receive Date: 20130910
  Receipt Date: 20130910
  Transmission Date: 20140515
  Serious: Yes (Other)
  Sender: FDA-Public Use
  Company Number: JP-VERTEX PHARMACEUTICALS INC-AE-2012-003431

PATIENT
  Age: 62 Year
  Sex: Male

DRUGS (4)
  1. VX-950 (TELAPREVIR) [Suspect]
     Indication: HEPATITIS C
     Dosage: 2250 MG, QD
     Route: 048
     Dates: start: 20120120, end: 20120127
  2. PEGINTRON [Suspect]
     Indication: HEPATITIS C
     Dosage: 1.36 ?G/KG, QW
     Route: 058
     Dates: start: 20120120, end: 20120127
  3. REBETOL [Suspect]
     Indication: HEPATITIS C
     Dosage: 600 MG, QD
     Route: 048
     Dates: start: 20120120, end: 20120127
  4. LOXOPROFEN [Concomitant]
     Dosage: 60 MG, QD/PRN
     Route: 048
     Dates: start: 20120120, end: 20120127

REACTIONS (2)
  - Decreased appetite [Recovered/Resolved]
  - Vomiting [Recovered/Resolved]
